FAERS Safety Report 9725059 (Version 3)
Quarter: 2014Q1

REPORT INFORMATION
  Report Type: Spontaneous
  Country: US (occurrence: US)
  Receive Date: 20131203
  Receipt Date: 20140114
  Transmission Date: 20141002
  Serious: No
  Sender: FDA-Public Use
  Company Number: US-BIOGENIDEC-2013BI114182

PATIENT
  Age: 41 Year
  Sex: Male

DRUGS (2)
  1. TYSABRI [Suspect]
     Indication: MULTIPLE SCLEROSIS
     Route: 042
     Dates: start: 20110502, end: 20130816
  2. AVONEX [Concomitant]
     Indication: MULTIPLE SCLEROSIS
     Route: 030
     Dates: start: 20021119

REACTIONS (3)
  - Multiple sclerosis relapse [Recovered/Resolved]
  - Muscular weakness [Recovered/Resolved]
  - Hypoaesthesia [Recovered/Resolved]
